FAERS Safety Report 6969457-6 (Version None)
Quarter: 2010Q3

REPORT INFORMATION
  Report Type: 
  Country: None (occurrence: None)
  Receive Date: 20100902
  Receipt Date: 20100816
  Transmission Date: 20110219
  Serious: Yes (Hospitalization)
  Sender: FDA-Public Use
  Company Number: 2010P1000986

PATIENT
  Age: 74 Year
  Sex: Female

DRUGS (2)
  1. BLINDED STUDY DRUG (DU-176B OR WARFARIN) [Suspect]
     Indication: THROMBOSIS PROPHYLAXIS
     Dates: start: 20091112, end: 20100128
  2. VICASOL [Concomitant]

REACTIONS (6)
  - CYST [None]
  - HAEMATURIA [None]
  - INTERNATIONAL NORMALISED RATIO INCREASED [None]
  - OVERDOSE [None]
  - URINARY TRACT DISORDER [None]
  - WHITE BLOOD CELL COUNT INCREASED [None]
